FAERS Safety Report 8532858-9 (Version None)
Quarter: 2012Q3

REPORT INFORMATION
  Report Type: 
  Country: None (occurrence: None)
  Receive Date: 20120712
  Receipt Date: 20120629
  Transmission Date: 20120928
  Serious: Yes (Hospitalization, Other)
  Sender: FDA-Public Use
  Company Number: US-2011-10562

PATIENT
  Age: 48 Year
  Sex: Female

DRUGS (9)
  1. MULTI VITAMIN AND MINERAL + SELENIUM (CHOLINE BITARTRATE, MINERALS NOS [Concomitant]
  2. ACETAMINOPHEN [Concomitant]
  3. VITAMIN D [Concomitant]
  4. PROCRIT [Concomitant]
  5. PRILOSEC [Concomitant]
  6. LISINOPRIL [Concomitant]
  7. PAXIL [Concomitant]
  8. OMEGA-3 (DOCOSAHEXANOIC ACID, EICOSAPENTAENOIC ACID) [Concomitant]
  9. OPC-41061 (TOLVAPTAN) TABLET, 15MG MILLIGRAM(S) [Suspect]
     Indication: CONGENITAL CYSTIC KIDNEY DISEASE
     Dosage: 60 MG MILLIGRAM(S), DAILY DOSE, ORAL
     Route: 048
     Dates: start: 20110615, end: 20110714

REACTIONS (10)
  - PYELONEPHRITIS [None]
  - HYDRONEPHROSIS [None]
  - RENAL FAILURE ACUTE [None]
  - VAGINAL HAEMORRHAGE [None]
  - ATELECTASIS [None]
  - ANAEMIA [None]
  - BLOOD SODIUM DECREASED [None]
  - PLEURAL EFFUSION [None]
  - BACTERIAL TEST POSITIVE [None]
  - NEPHROLITHIASIS [None]
